FAERS Safety Report 7536240-2 (Version None)
Quarter: 2011Q2

REPORT INFORMATION
  Report Type: 
  Country: None (occurrence: None)
  Receive Date: 20110609
  Receipt Date: 20110607
  Transmission Date: 20111010
  Serious: Yes (Hospitalization)
  Sender: FDA-Public Use
  Company Number: AT-BRISTOL-MYERS SQUIBB COMPANY-15811383

PATIENT
  Age: 68 Year
  Sex: Female
  Weight: 72 kg

DRUGS (8)
  1. NAPROXEN [Concomitant]
     Dosage: 1DF= 500 UNIT NOS.
  2. GLYBURIDE [Concomitant]
  3. METHOTREXATE [Concomitant]
     Route: 048
     Dates: start: 20040101, end: 20110101
  4. ABATACEPT [Suspect]
     Indication: RHEUMATOID ARTHRITIS
     Route: 042
     Dates: start: 20090601, end: 20110601
  5. LANSOPRAZOLE [Concomitant]
  6. DICLOFENAC SODIUM [Concomitant]
     Dosage: 1DF= 250 UNIT NOS.
     Dates: start: 20030101
  7. LISINOPRIL [Concomitant]
  8. PREDNISOLONE [Concomitant]
     Dosage: ALSO 5MG.
     Dates: start: 20070101, end: 20110101

REACTIONS (1)
  - CORONARY ARTERIAL STENT INSERTION [None]
